FAERS Safety Report 21445638 (Version 1)
Quarter: 2022Q4

REPORT INFORMATION
  Report Type: Spontaneous
  Country: US (occurrence: None)
  Receive Date: 20221011
  Receipt Date: 20221011
  Transmission Date: 20230112
  Serious: Yes (unspecified)
  Sender: FDA-Public Use
  Company Number: None

PATIENT
  Age: 67 Year
  Sex: Male
  Weight: 94.5 kg

DRUGS (11)
  1. AMLODIPINE BESYLATE [Suspect]
     Active Substance: AMLODIPINE BESYLATE
     Indication: Hypertension
     Dosage: OTHER QUANTITY : 90 TABLET(S);?FREQUENCY : DAILY;?
     Route: 048
     Dates: start: 20220723, end: 20220727
  2. LISINOPRIL [Concomitant]
     Active Substance: LISINOPRIL
  3. VITAMIN C [Concomitant]
     Active Substance: ASCORBIC ACID
  4. MINERALS\VITAMINS [Concomitant]
     Active Substance: MINERALS\VITAMINS
  5. VITAMIN D3 [Concomitant]
     Active Substance: CHOLECALCIFEROL
  6. ZINC [Concomitant]
     Active Substance: ZINC
  7. GARLIC [Concomitant]
     Active Substance: GARLIC
  8. BIOTIN [Concomitant]
     Active Substance: BIOTIN
  9. L Lysine [Concomitant]
  10. E [Concomitant]
  11. Ostio Byflex [Concomitant]

REACTIONS (7)
  - Back pain [None]
  - Arthralgia [None]
  - Joint swelling [None]
  - Pain [None]
  - Gait disturbance [None]
  - Suspected product contamination [None]
  - Product formulation issue [None]

NARRATIVE: CASE EVENT DATE: 20220726
